FAERS Safety Report 10075518 (Version 1)
Quarter: 2014Q2

REPORT INFORMATION
  Report Type: Spontaneous
  Country: US (occurrence: None)
  Receive Date: 20140411
  Receipt Date: 20140411
  Transmission Date: 20141212
  Serious: Yes (Hospitalization)
  Sender: FDA-Public Use
  Company Number: None

PATIENT
  Age: 72 Year
  Sex: Female
  Weight: 93.6 kg

DRUGS (2)
  1. CARBOPLATIN [Suspect]
     Dates: end: 20101228
  2. DOCETAXEL [Suspect]
     Dates: end: 20101228

REACTIONS (11)
  - Nausea [None]
  - Vomiting [None]
  - Diarrhoea [None]
  - Dehydration [None]
  - Hyperglycaemia [None]
  - Thrombocytopenia [None]
  - Haematochezia [None]
  - Peptic ulcer [None]
  - Oesophagitis [None]
  - Gastritis [None]
  - Duodenitis [None]
